FAERS Safety Report 7979985-2 (Version None)
Quarter: 2011Q4

REPORT INFORMATION
  Report Type: 
  Country: None (occurrence: None)
  Receive Date: 20111214
  Receipt Date: 20111202
  Transmission Date: 20120403
  Serious: Yes (Other)
  Sender: FDA-Public Use
  Company Number: PHHY2011BR106272

PATIENT
  Sex: Female
  Weight: 53 kg

DRUGS (3)
  1. DIOVAN HCT [Suspect]
  2. ACETYLSALICYLIC ACID SRT [Concomitant]
  3. OLCADIL [Suspect]
     Indication: PSYCHOMOTOR HYPERACTIVITY
     Dosage: 1 DF (UNK), QD AT NIGHT
     Route: 048

REACTIONS (1)
  - DIABETES MELLITUS [None]
